FAERS Safety Report 7308161-1 (Version None)
Quarter: 2011Q1

REPORT INFORMATION
  Report Type: 
  Country: None (occurrence: None)
  Receive Date: 20110223
  Receipt Date: 20110214
  Transmission Date: 20110831
  Serious: Yes (Other)
  Sender: FDA-Public Use
  Company Number: BR-ROCHE-759414

PATIENT

DRUGS (1)
  1. ISOTRETINOIN [Suspect]
     Dosage: DOSE: 1.0 TO 1.5 MG/KG/DAY FOR 5 WEEKS
     Route: 048

REACTIONS (3)
  - ANAEMIA [None]
  - BLOOD GLUCOSE INCREASED [None]
  - HYPERTRIGLYCERIDAEMIA [None]
